FAERS Safety Report 10299291 (Version 3)
Quarter: 2014Q3

REPORT INFORMATION
  Report Type: Spontaneous
  Country: US (occurrence: US)
  Receive Date: 20140711
  Receipt Date: 20140825
  Transmission Date: 20150326
  Serious: No
  Sender: FDA-Public Use
  Company Number: US-PFIZER INC-2014189551

PATIENT
  Age: 58 Year
  Sex: Female
  Weight: 161.91 kg

DRUGS (1)
  1. LYRICA [Suspect]
     Active Substance: PREGABALIN
     Indication: DIABETIC NEUROPATHY
     Dosage: (THREE 50MG CAPSULES IN MORNING AND TWO 50MG CAPSULES AT NIGHT)
     Route: 048
     Dates: start: 201312, end: 20140701

REACTIONS (6)
  - Skin ulcer [Unknown]
  - Pain in extremity [Unknown]
  - Pain [Unknown]
  - Blood test abnormal [Unknown]
  - Pain [Unknown]
  - Peripheral swelling [Unknown]

NARRATIVE: CASE EVENT DATE: 201407
